FAERS Safety Report 9517282 (Version 1)
Quarter: 2013Q3

REPORT INFORMATION
  Report Type: Spontaneous
  Country: US (occurrence: US)
  Receive Date: 20130911
  Receipt Date: 20130911
  Transmission Date: 20140515
  Serious: No
  Sender: FDA-Public Use
  Company Number: US-ASTRAZENECA-2013SE54953

PATIENT
  Age: 90 Year
  Sex: Female
  Weight: 64 kg

DRUGS (2)
  1. SYMBICORT [Suspect]
     Indication: CHRONIC OBSTRUCTIVE PULMONARY DISEASE
     Dosage: 160/4.5 MCG 2 PUFFS BID
     Route: 055
     Dates: start: 20130717
  2. BLOOD PRESSURE MEDICINE [Concomitant]

REACTIONS (3)
  - Chest pain [Unknown]
  - Circumstance or information capable of leading to medication error [Unknown]
  - Device misuse [Unknown]
